FAERS Safety Report 4638967-9 (Version None)
Quarter: 2005Q2

REPORT INFORMATION
  Report Type: 
  Country: None (occurrence: None)
  Receive Date: 20050419
  Receipt Date: 20040930
  Transmission Date: 20051028
  Serious: Yes (Other)
  Sender: FDA-Public Use
  Company Number: PHBS2004JP13178

PATIENT
  Age: 51 Year
  Sex: Female
  Weight: 46 kg

DRUGS (6)
  1. HYPEN [Concomitant]
     Dosage: 400 MG/D
     Route: 048
     Dates: start: 20031022
  2. NEORAL [Suspect]
     Indication: SYSTEMIC LUPUS ERYTHEMATOSUS
     Dosage: 50 MG/D
     Route: 048
     Dates: start: 20040917, end: 20040929
  3. PREDNISOLONE [Suspect]
     Dosage: 30 MG/D
     Route: 048
     Dates: start: 20031022
  4. GASTER [Concomitant]
     Dosage: 40 MG/D
     Route: 048
     Dates: start: 20031022
  5. RHEUMATREX [Concomitant]
     Route: 065
  6. FOLIAMIN [Concomitant]
     Dosage: 5 MG/D
     Route: 048

REACTIONS (3)
  - CHOROIDAL DETACHMENT [None]
  - RETINAL DETACHMENT [None]
  - VISUAL ACUITY REDUCED [None]
